FAERS Safety Report 26129877 (Version 1)
Quarter: 2025Q4

REPORT INFORMATION
  Report Type: Spontaneous
  Country: US (occurrence: US)
  Receive Date: 20251208
  Receipt Date: 20251208
  Transmission Date: 20260118
  Serious: No
  Sender: ALEXION PHARMACEUTICALS
  Company Number: US-AstraZeneca-CH-01005984A

PATIENT
  Sex: Female

DRUGS (1)
  1. BREZTRI [Suspect]
     Active Substance: BUDESONIDE\FORMOTEROL\GLYCOPYRROLATE
     Dosage: UNK
     Route: 065

REACTIONS (7)
  - Upper-airway cough syndrome [Unknown]
  - Drug ineffective [Unknown]
  - Irritability [Unknown]
  - Mite allergy [Unknown]
  - Condition aggravated [Unknown]
  - Incorrect dose administered [Unknown]
  - Dyspnoea [Unknown]
